FAERS Safety Report 7957616-5 (Version None)
Quarter: 2011Q4

REPORT INFORMATION
  Report Type: 
  Country: None (occurrence: None)
  Receive Date: 20111205
  Receipt Date: 20111121
  Transmission Date: 20120403
  Serious: Yes (Hospitalization)
  Sender: FDA-Public Use
  Company Number: PHHO2011NL019486

PATIENT
  Sex: Male
  Weight: 86 kg

DRUGS (10)
  1. METOPROLOL TARTRATE [Concomitant]
     Indication: HYPERTENSION
     Dosage: UNK
     Dates: start: 20110913, end: 20111103
  2. COTRIM [Concomitant]
     Indication: PROPHYLAXIS
     Dosage: 450 MG, UNK
     Route: 065
     Dates: start: 20110913, end: 20111103
  3. TAMSULOSIN HCL [Concomitant]
     Indication: BENIGN PROSTATIC HYPERPLASIA
     Dosage: 40 MG, UNK
     Route: 065
     Dates: start: 20110913, end: 20111103
  4. NEORAL [Suspect]
     Indication: RENAL TRANSPLANT
     Dosage: UNK
     Dates: start: 20111028, end: 20111103
  5. FUROSEMIDE [Concomitant]
     Indication: HYPERTENSION
     Dosage: UNK
     Dates: start: 20110913, end: 20111103
  6. ASCAL [Concomitant]
     Indication: PROPHYLAXIS
     Dosage: 100 MG, UNK
     Route: 048
     Dates: start: 20110913, end: 20111103
  7. PREDNISONE TAB [Concomitant]
     Indication: RENAL TRANSPLANT
     Dosage: UNK
     Dates: start: 20110913
  8. SIMVASTATIN [Concomitant]
     Indication: HYPERCHOLESTEROLAEMIA
     Dosage: UNK
     Dates: start: 20110913, end: 20111103
  9. MYFORTIC [Suspect]
     Dosage: UNK
     Dates: start: 20110913, end: 20111103
  10. NEXIUM [Concomitant]
     Indication: PROPHYLAXIS
     Dosage: 20 MG, UNK
     Route: 065
     Dates: start: 20110913, end: 20111103

REACTIONS (3)
  - PYELONEPHRITIS ACUTE [None]
  - RENAL FAILURE ACUTE [None]
  - WOUND INFECTION [None]
